FAERS Safety Report 24196496 (Version 1)
Quarter: 2024Q3

REPORT INFORMATION
  Report Type: Spontaneous
  Country: US (occurrence: US)
  Receive Date: 20240810
  Receipt Date: 20240810
  Transmission Date: 20241017
  Serious: No
  Sender: SANOFI AVENTIS
  Company Number: US-SANOFI-02163310

PATIENT
  Age: 86 Year
  Sex: Female

DRUGS (5)
  1. DUPIXENT [Suspect]
     Active Substance: DUPILUMAB
     Indication: Dermatitis atopic
     Dosage: UNK 1X; LOADING DOSE
     Dates: start: 20240626, end: 20240626
  2. DUPIXENT [Suspect]
     Active Substance: DUPILUMAB
     Dosage: UNK; ONE MAINTENANCE DOSE
     Dates: start: 202407, end: 2024
  3. ELIQUIS [Concomitant]
     Active Substance: APIXABAN
  4. HYDROXYZINE [Concomitant]
     Active Substance: HYDROXYZINE HYDROCHLORIDE
  5. VALSARTAN [Concomitant]
     Active Substance: VALSARTAN

REACTIONS (1)
  - Arthralgia [Unknown]

NARRATIVE: CASE EVENT DATE: 20240101
